FAERS Safety Report 4705329-5 (Version None)
Quarter: 2005Q2

REPORT INFORMATION
  Report Type: 
  Country: None (occurrence: None)
  Receive Date: 20050629
  Receipt Date: 20050614
  Transmission Date: 20051028
  Serious: Yes (Other)
  Sender: FDA-Public Use
  Company Number: 2005080332

PATIENT
  Age: 86 Year
  Sex: Male
  Weight: 72.5755 kg

DRUGS (5)
  1. POLYSPORIN OINTMENT [Suspect]
     Indication: RASH
     Dosage: LITTLE ON END OF TOOTHPICK QD -
     Dates: end: 20050101
  2. POTASSIUM (POTASSIUM) [Concomitant]
  3. SALICYLATES (SALICYLATES) [Concomitant]
  4. HYDROCHLOROTHIAZIDE [Concomitant]
  5. ALENDRONATE SODIUM [Concomitant]

REACTIONS (5)
  - ACNE [None]
  - DRUG INEFFECTIVE [None]
  - PHARMACEUTICAL PRODUCT COMPLAINT [None]
  - RASH [None]
  - SKIN CANCER [None]
